FAERS Safety Report 12532438 (Version 1)
Quarter: 2016Q3

REPORT INFORMATION
  Report Type: Spontaneous
  Country: US (occurrence: US)
  Receive Date: 20160706
  Receipt Date: 20160706
  Transmission Date: 20161109
  Serious: No
  Sender: FDA-Public Use
  Company Number: US-PURDUE-USA-2015-0124664

PATIENT
  Sex: Female

DRUGS (1)
  1. BUTRANS [Suspect]
     Active Substance: BUPRENORPHINE
     Indication: BACK PAIN
     Dosage: 10 MCG/HR, WEEKLY
     Route: 062
     Dates: start: 20150630

REACTIONS (6)
  - Somnolence [Unknown]
  - Nausea [Unknown]
  - Fatigue [Unknown]
  - Dizziness [Unknown]
  - Headache [Unknown]
  - Vomiting [Unknown]
